FAERS Safety Report 7622810-X (Version None)
Quarter: 2011Q3

REPORT INFORMATION
  Report Type: 
  Country: None (occurrence: None)
  Receive Date: 20110720
  Receipt Date: 20110714
  Transmission Date: 20111222
  Serious: Yes (Other)
  Sender: FDA-Public Use
  Company Number: PL-TEVA-290871ISR

PATIENT
  Sex: Male

DRUGS (1)
  1. LIFIN [Suspect]
     Route: 048

REACTIONS (1)
  - BLOOD PRESSURE SYSTOLIC DECREASED [None]
